FAERS Safety Report 5411288-2 (Version None)
Quarter: 2007Q3

REPORT INFORMATION
  Report Type: 
  Country: None (occurrence: None)
  Receive Date: 20070810
  Receipt Date: 20070802
  Transmission Date: 20080115
  Serious: Yes (Life-Threatening)
  Sender: FDA-Public Use
  Company Number: JP-ROCHE-510070

PATIENT
  Age: 63 Year
  Sex: Male

DRUGS (4)
  1. VALIXA [Suspect]
     Indication: CYTOMEGALOVIRUS ANTIGEN POSITIVE
     Route: 048
     Dates: start: 20070612, end: 20070615
  2. BAKTAR [Suspect]
     Indication: DRUG USE FOR UNKNOWN INDICATION
     Route: 048
     Dates: start: 20070601
  3. BAKTAR [Suspect]
     Dosage: LOWERED DOSAGE IN RESPONSE TO HYPONATRAEMIA.
     Route: 048
  4. UNSPECIFIED DRUG [Concomitant]
     Dosage: ADRENAL HORMONE PREPARATIONS.

REACTIONS (2)
  - HYPONATRAEMIA [None]
  - INAPPROPRIATE ANTIDIURETIC HORMONE SECRETION [None]
